FAERS Safety Report 20140152 (Version 1)
Quarter: 2021Q4

REPORT INFORMATION
  Report Type: Spontaneous
  Country: SK (occurrence: None)
  Receive Date: 20211202
  Receipt Date: 20211202
  Transmission Date: 20220303
  Serious: Yes (Other)
  Sender: FDA-Public Use
  Company Number: 2021A838115

PATIENT
  Age: 58 Year
  Sex: Female

DRUGS (1)
  1. LYNPARZA [Suspect]
     Active Substance: OLAPARIB
     Dosage: 50 MG, TWO TIMES A DAY, 6 TIMES AT THE MORNING AND 6 TIMES AT THE EVENING
     Route: 048

REACTIONS (2)
  - Tumour marker increased [Unknown]
  - Blood pressure increased [Unknown]
